FAERS Safety Report 22651000 (Version 1)
Quarter: 2023Q2

REPORT INFORMATION
  Report Type: Spontaneous
  Country: BR (occurrence: BR)
  Receive Date: 20230628
  Receipt Date: 20230628
  Transmission Date: 20230722
  Serious: Yes (Other)
  Sender: FDA-Public Use
  Company Number: BR-BAYER-2023A085348

PATIENT
  Sex: Female

DRUGS (1)
  1. NEXAVAR [Suspect]
     Active Substance: SORAFENIB
     Indication: Benign neoplasm
     Dosage: UNK

REACTIONS (8)
  - Gait inability [None]
  - Skin disorder [None]
  - Skin fissures [None]
  - Alopecia [None]
  - Erythema [None]
  - Pain [None]
  - Swelling [None]
  - Blister [None]
